FAERS Safety Report 6605231-8 (Version None)
Quarter: 2010Q1

REPORT INFORMATION
  Report Type: 
  Country: None (occurrence: None)
  Receive Date: 20100226
  Receipt Date: 20100217
  Transmission Date: 20100710
  Serious: Yes (Other)
  Sender: FDA-Public Use
  Company Number: US-AMGEN-QUU393674

PATIENT
  Sex: Male

DRUGS (3)
  1. NPLATE [Suspect]
     Indication: IDIOPATHIC THROMBOCYTOPENIC PURPURA
     Dates: start: 20090708, end: 20091110
  2. CORTICOSTEROIDS [Concomitant]
     Dates: start: 20070301
  3. WINRHO [Concomitant]

REACTIONS (3)
  - DRUG INEFFECTIVE [None]
  - HYPERGAMMAGLOBULINAEMIA BENIGN MONOCLONAL [None]
  - THERAPEUTIC RESPONSE DECREASED [None]
